FAERS Safety Report 9991778 (Version 4)
Quarter: 2014Q1

REPORT INFORMATION
  Report Type: Spontaneous
  Country: JP (occurrence: JP)
  Receive Date: 20140310
  Receipt Date: 20140314
  Transmission Date: 20141002
  Serious: Yes (Life-Threatening)
  Sender: FDA-Public Use
  Company Number: JP-JNJFOC-20140205581

PATIENT
  Age: 84 Year
  Sex: Female

DRUGS (1)
  1. FINIBAX [Suspect]
     Indication: PNEUMONIA ASPIRATION
     Route: 041
     Dates: start: 20140131, end: 20140203

REACTIONS (1)
  - Convulsion [Unknown]
